FAERS Safety Report 4959610-5 (Version None)
Quarter: 2006Q1

REPORT INFORMATION
  Report Type: 
  Country: None (occurrence: None)
  Receive Date: 20060324
  Receipt Date: 20060220
  Transmission Date: 20060701
  Serious: Yes (Other)
  Sender: FDA-Public Use
  Company Number: 1017687-2006-001

PATIENT
  Sex: Female

DRUGS (1)
  1. CYTRA-2 (SODIUM CITRATE+CITRIC ACID) [Suspect]
     Dosage: ADULT DOSE: ORAL 500/334 MGL 2X DAILY
     Dates: start: 20060128, end: 20060129

REACTIONS (1)
  - PRURITUS GENERALISED [None]
